FAERS Safety Report 16040446 (Version 2)
Quarter: 2019Q2

REPORT INFORMATION
  Report Type: Spontaneous
  Country: FI (occurrence: FI)
  Receive Date: 20190306
  Receipt Date: 20190423
  Transmission Date: 20190711
  Serious: Yes (Other)
  Sender: FDA-Public Use
  Company Number: FI-TEVA-2019-FI-1018944

PATIENT
  Age: 39 Year
  Sex: Female

DRUGS (8)
  1. KETESSE [Concomitant]
     Active Substance: DEXKETOPROFEN TROMETAMOL
     Indication: MIGRAINE
     Dosage: 50,MG,X1
     Route: 042
     Dates: start: 20190104, end: 20190104
  2. DICLOMEX RAPID [Concomitant]
     Indication: MIGRAINE
     Dosage: 100,MG,DAILY
     Route: 048
     Dates: start: 20181113
  3. TOPIRAMAT ORION [Concomitant]
     Indication: MIGRAINE PROPHYLAXIS
     Dosage: 125,MG,DAILY
     Route: 048
     Dates: start: 20181113
  4. CANDESARTAN ORION [Concomitant]
     Active Substance: CANDESARTAN
     Indication: MIGRAINE PROPHYLAXIS
     Dosage: 16 ,MG, WEEKLY
     Route: 048
     Dates: start: 2014
  5. KLOTRIPTYL MITE [Concomitant]
     Indication: MIGRAINE PROPHYLAXIS
     Dosage: 1,DF,DAILY
     Route: 048
     Dates: start: 20181213, end: 20190113
  6. SUMATRIPTAN TEVA [Concomitant]
     Active Substance: SUMATRIPTAN
     Indication: MIGRAINE
     Dosage: 200,MG,DAILY
     Route: 048
  7. DIAZEPAM BP [Suspect]
     Active Substance: DIAZEPAM
     Indication: MIGRAINE
     Dosage: 5,MG,X1
     Route: 042
     Dates: start: 20190104, end: 20190104
  8. PRIMPERAN [Concomitant]
     Active Substance: METOCLOPRAMIDE HYDROCHLORIDE
     Indication: MIGRAINE
     Dosage: 20,MG,DAILY
     Route: 048
     Dates: start: 20181113, end: 20190131

REACTIONS (3)
  - Reaction to excipient [Not Recovered/Not Resolved]
  - Phlebitis [Not Recovered/Not Resolved]
  - Injection site thrombosis [Not Recovered/Not Resolved]

NARRATIVE: CASE EVENT DATE: 20190104
